FAERS Safety Report 22210556 (Version 1)
Quarter: 2023Q2

REPORT INFORMATION
  Report Type: Spontaneous
  Country: CN (occurrence: CN)
  Receive Date: 20230414
  Receipt Date: 20230414
  Transmission Date: 20230722
  Serious: Yes (Hospitalization, Other)
  Sender: FDA-Public Use
  Company Number: None

PATIENT
  Age: 41 Year
  Sex: Female
  Weight: 75 kg

DRUGS (11)
  1. CYCLOPHOSPHAMIDE [Suspect]
     Active Substance: CYCLOPHOSPHAMIDE
     Indication: Breast cancer female
     Dosage: 900 MG, QD DILUTED WITH 500 ML OF SODIUM CHLORIDE,  AS PART OF TAC REGIMEN CHEMOTHERAPY
     Route: 041
     Dates: start: 20230328, end: 20230328
  2. CYCLOPHOSPHAMIDE [Suspect]
     Active Substance: CYCLOPHOSPHAMIDE
     Indication: Breast cancer stage III
  3. CYCLOPHOSPHAMIDE [Suspect]
     Active Substance: CYCLOPHOSPHAMIDE
     Indication: Triple negative breast cancer
  4. EPIRUBICIN HYDROCHLORIDE [Suspect]
     Active Substance: EPIRUBICIN HYDROCHLORIDE
     Indication: Breast cancer female
     Dosage: 170 MG, QD, AS PART OF TAC REGIMEN CHEMOTHERAPY
     Route: 041
     Dates: start: 20230328, end: 20230328
  5. EPIRUBICIN HYDROCHLORIDE [Suspect]
     Active Substance: EPIRUBICIN HYDROCHLORIDE
     Indication: Breast cancer stage III
  6. EPIRUBICIN HYDROCHLORIDE [Suspect]
     Active Substance: EPIRUBICIN HYDROCHLORIDE
     Indication: Triple negative breast cancer
  7. DOCETAXEL [Suspect]
     Active Substance: DOCETAXEL
     Indication: Breast cancer female
     Dosage: 140 MG, QD DILUTED WITH 250 ML OF SODIUM CHLORIDE, AS PART OF TAC REGIMEN CHEMOTHERAPY
     Route: 041
     Dates: start: 20230328, end: 20230328
  8. DOCETAXEL [Suspect]
     Active Substance: DOCETAXEL
     Indication: Breast cancer stage III
  9. DOCETAXEL [Suspect]
     Active Substance: DOCETAXEL
     Indication: Triple negative breast cancer
  10. SODIUM CHLORIDE [Suspect]
     Active Substance: SODIUM CHLORIDE
     Indication: Medication dilution
     Dosage: 500 ML, QD, USED TO DILUTE 900 MG CYCLOPHOSPHAMIDE, AS PART OF TAC REGIMEN CHEMOTHERAPY
     Route: 041
     Dates: start: 20230328, end: 20230328
  11. SODIUM CHLORIDE [Suspect]
     Active Substance: SODIUM CHLORIDE
     Dosage: 250 ML, QD USED TO DILUTE 140 MG DOCETAXEL,  AS PART OF TAC REGIMEN CHEMOTHERAPY
     Route: 041
     Dates: start: 20230328, end: 20230328

REACTIONS (15)
  - Breast cancer female [Unknown]
  - Condition aggravated [Unknown]
  - Triple negative breast cancer [Unknown]
  - Breast cancer stage III [Unknown]
  - Mental impairment [Unknown]
  - Illness [Unknown]
  - Myelosuppression [Not Recovered/Not Resolved]
  - Pyrexia [Not Recovered/Not Resolved]
  - Asthenia [Not Recovered/Not Resolved]
  - Disease progression [Not Recovered/Not Resolved]
  - Inadequate diet [Unknown]
  - Discomfort [Unknown]
  - Condition aggravated [Unknown]
  - Decreased appetite [Unknown]
  - Diarrhoea [Unknown]

NARRATIVE: CASE EVENT DATE: 20230403
